FAERS Safety Report 8274917-4 (Version None)
Quarter: 2012Q2

REPORT INFORMATION
  Report Type: 
  Country: None (occurrence: None)
  Receive Date: 20120411
  Receipt Date: 20120403
  Transmission Date: 20120825
  Serious: Yes (Death, Other)
  Sender: FDA-Public Use
  Company Number: GB-JNJFOC-20120403315

PATIENT

DRUGS (24)
  1. PREDNISOLONE [Suspect]
     Indication: HODGKIN'S DISEASE
     Route: 048
  2. PROCARBAZINE HYDROCHLORIDE [Suspect]
     Route: 048
  3. DACARBAZINE [Suspect]
     Route: 042
  4. CHLORAMBUCIL [Suspect]
     Indication: HODGKIN'S DISEASE
     Route: 048
  5. BLEOMYCIN SULFATE [Suspect]
     Route: 042
  6. DACARBAZINE [Suspect]
     Route: 042
  7. DOXORUBICIN HCL [Suspect]
     Route: 042
  8. CHLORAMBUCIL [Suspect]
     Route: 048
  9. VINCRISTINE [Suspect]
     Indication: HODGKIN'S DISEASE
     Route: 042
  10. VINCRISTINE [Suspect]
     Route: 042
  11. DACARBAZINE [Suspect]
     Indication: HODGKIN'S DISEASE
     Route: 042
  12. CHLORAMBUCIL [Suspect]
     Route: 048
  13. VINBLASTINE SULFATE [Suspect]
     Route: 042
  14. PREDNISOLONE [Suspect]
     Route: 048
  15. DOXORUBICIN HCL [Suspect]
     Route: 042
  16. BLEOMYCIN SULFATE [Suspect]
     Indication: HODGKIN'S DISEASE
     Route: 042
  17. BLEOMYCIN SULFATE [Suspect]
     Route: 042
  18. VINCRISTINE [Suspect]
     Route: 042
  19. PROCARBAZINE HYDROCHLORIDE [Suspect]
     Indication: HODGKIN'S DISEASE
     Route: 048
  20. PREDNISOLONE [Suspect]
     Route: 048
  21. DOXORUBICIN HCL [Suspect]
     Indication: HODGKIN'S DISEASE
     Route: 042
  22. VINBLASTINE SULFATE [Suspect]
     Indication: HODGKIN'S DISEASE
     Route: 042
  23. VINBLASTINE SULFATE [Suspect]
     Route: 042
  24. PROCARBAZINE HYDROCHLORIDE [Suspect]
     Route: 048

REACTIONS (4)
  - HODGKIN'S DISEASE [None]
  - CARDIOPULMONARY FAILURE [None]
  - ANAPHYLACTIC REACTION [None]
  - NEUTROPENIA [None]
